FAERS Safety Report 16656228 (Version 1)
Quarter: 2019Q3

REPORT INFORMATION
  Report Type: Spontaneous
  Country: US (occurrence: US)
  Receive Date: 20190617
  Receipt Date: 20190617
  Transmission Date: 20191004
  Serious: No
  Sender: FDA-Public Use
  Company Number: None

PATIENT
  Age: 48 Year
  Sex: Female
  Weight: 45.81 kg

DRUGS (7)
  1. ALPRAZPLAM [Concomitant]
  2. NALOXONE HCI DIHYDRATE [Concomitant]
  3. SUBLINGUAL FILM [Concomitant]
  4. BUPRENORPHINE AND NALOXONE SUBLINGUAL FILM [Suspect]
     Active Substance: BUPRENORPHINE HYDROCHLORIDE\NALOXONE HYDROCHLORIDE
     Indication: DRUG DEPENDENCE
     Dosage: ?          QUANTITY:3 FILMS DAILY;?
     Route: 060
     Dates: start: 20190430
  5. BUPERNORPHINE HCI [Concomitant]
  6. MIRALAX [Concomitant]
     Active Substance: POLYETHYLENE GLYCOL 3350
  7. IBUPROFEN. [Concomitant]
     Active Substance: IBUPROFEN

REACTIONS (5)
  - Burning sensation [None]
  - Withdrawal syndrome [None]
  - Oral disorder [None]
  - Therapeutic product effect incomplete [None]
  - Hunger [None]

NARRATIVE: CASE EVENT DATE: 20190430
